FAERS Safety Report 19388823 (Version 1)
Quarter: 2021Q2

REPORT INFORMATION
  Report Type: Spontaneous
  Country: US (occurrence: US)
  Receive Date: 20210607
  Receipt Date: 20210607
  Transmission Date: 20210717
  Serious: No
  Sender: FDA-Public Use
  Company Number: None

PATIENT
  Age: 73 Year
  Sex: Female
  Weight: 64.5 kg

DRUGS (14)
  1. LEUCOVORIN CALCIUM. [Concomitant]
     Active Substance: LEUCOVORIN CALCIUM
  2. ONDANSETRON HCL [Concomitant]
     Active Substance: ONDANSETRON HYDROCHLORIDE
  3. BENTYL [Concomitant]
     Active Substance: DICYCLOMINE HYDROCHLORIDE
  4. CAPECITABINE. [Suspect]
     Active Substance: CAPECITABINE
     Indication: COLON CANCER
     Route: 048
     Dates: start: 20210316, end: 20210607
  5. AUGMENTIN [Concomitant]
     Active Substance: AMOXICILLIN\CLAVULANATE POTASSIUM
  6. EXEMESTANE. [Concomitant]
     Active Substance: EXEMESTANE
  7. TRAMADOL HCL [Concomitant]
     Active Substance: TRAMADOL HYDROCHLORIDE
  8. FIBER [Concomitant]
     Active Substance: PSYLLIUM HUSK
  9. ARIMIDEX [Concomitant]
     Active Substance: ANASTROZOLE
  10. ALEVE [Concomitant]
     Active Substance: NAPROXEN SODIUM
  11. DEXAMETHASONE. [Concomitant]
     Active Substance: DEXAMETHASONE
  12. IMODIUM A?D [Concomitant]
     Active Substance: LOPERAMIDE HYDROCHLORIDE
  13. AQUAPHOR [Concomitant]
     Active Substance: PETROLATUM
  14. FAMOTIDINE MAXIMUM STRENGTH [Concomitant]

REACTIONS (4)
  - Lacrimation increased [None]
  - Skin exfoliation [None]
  - Swelling [None]
  - Arthralgia [None]
